FAERS Safety Report 8289859-8 (Version None)
Quarter: 2012Q2

REPORT INFORMATION
  Report Type: 
  Country: None (occurrence: None)
  Receive Date: 20120417
  Receipt Date: 20111121
  Transmission Date: 20120825
  Serious: No
  Sender: FDA-Public Use
  Company Number: US-MYLANLABS-2011S1024002

PATIENT
  Age: 74 Year
  Sex: Male

DRUGS (2)
  1. VALIUM [Concomitant]
     Indication: SLEEP DISORDER
     Route: 048
  2. PAROXETINE HYDROCHLORIDE [Suspect]
     Indication: PANIC DISORDER

REACTIONS (2)
  - DRUG INEFFECTIVE [None]
  - PANIC ATTACK [None]
